FAERS Safety Report 5708664-7 (Version None)
Quarter: 2008Q2

REPORT INFORMATION
  Report Type: 
  Country: None (occurrence: None)
  Receive Date: 20080417
  Receipt Date: 20080408
  Transmission Date: 20081010
  Serious: Yes (Disabling)
  Sender: FDA-Public Use
  Company Number: US-WYE-H03516708

PATIENT
  Sex: Male
  Weight: 91.6 kg

DRUGS (22)
  1. TORISEL [Suspect]
     Indication: RENAL CELL CARCINOMA
     Route: 042
     Dates: start: 20070719, end: 20070802
  2. TORISEL [Suspect]
     Route: 042
     Dates: start: 20070802, end: 20070906
  3. HYDROCORTISONE ACETATE [Concomitant]
     Indication: ADRENAL INSUFFICIENCY
     Dosage: 20MG IN AM DAILY
     Route: 065
  4. HYDROCORTISONE ACETATE [Concomitant]
     Dosage: 10MG IN PM DAILY
     Route: 065
  5. ECHINACEA [Concomitant]
     Route: 065
  6. FLUOROURACIL [Concomitant]
     Dosage: UNSPECIFIED DAILY DOSE
     Route: 061
  7. GABAPENTIN [Concomitant]
     Indication: NEURALGIA
     Route: 065
  8. IBUPROFEN [Concomitant]
     Dosage: 600 MG EVERY 1 PRN
     Route: 065
  9. IRON [Concomitant]
     Route: 048
  10. MAGNESIUM [Concomitant]
  11. MEGESTROL ACETATE [Concomitant]
     Route: 065
  12. TELMISARTAN [Concomitant]
     Indication: HYPERTENSION
     Route: 065
  13. MULTI-VITAMINS [Concomitant]
  14. AMLODIPINE BESILATE [Concomitant]
     Route: 065
  15. OXYCODONE HCL [Concomitant]
     Dosage: 5 MG EVERY 1 PRN
  16. OXYCODONE HYDROCHLORIDE [Concomitant]
  17. PROMETHAZINE [Concomitant]
     Dosage: 25 MG EVERY 1 PRN
  18. MODAFINIL [Concomitant]
     Indication: FATIGUE
     Route: 065
  19. METOPROLOL SUCCINATE [Concomitant]
     Indication: HYPERTENSION
     Route: 065
  20. ASCORBIC ACID [Concomitant]
     Route: 065
  21. TOCOPHEROL CONCENTRATE CAP [Concomitant]
     Dosage: 400 UNIT EVERY 1 DAY
     Route: 065
  22. ASPIRIN [Concomitant]
     Route: 065

REACTIONS (4)
  - DYSPNOEA [None]
  - FACE OEDEMA [None]
  - HYPOAESTHESIA [None]
  - OEDEMA PERIPHERAL [None]
